FAERS Safety Report 4976588-9 (Version None)
Quarter: 2006Q2

REPORT INFORMATION
  Report Type: 
  Country: None (occurrence: None)
  Receive Date: 20060419
  Receipt Date: 20051013
  Transmission Date: 20061013
  Serious: Yes (Death, Hospitalization, Other)
  Sender: FDA-Public Use
  Company Number: PR-MERCK-0510USA07395

PATIENT
  Age: 71 Year
  Sex: Female
  Weight: 66 kg

DRUGS (26)
  1. DIGOXIN [Concomitant]
     Route: 065
  2. ACTOS [Concomitant]
     Route: 065
  3. CIPRO [Concomitant]
     Route: 065
  4. TICLID [Concomitant]
     Route: 065
  5. [THERAPY UNSPECIFIED] [Concomitant]
     Route: 065
  6. ECOTRIN [Concomitant]
     Route: 065
  7. FOSAMAX [Concomitant]
     Route: 065
  8. DIOVAN [Concomitant]
     Route: 065
  9. COREG [Concomitant]
     Route: 065
  10. BAYCOL [Concomitant]
     Route: 065
  11. PRAVACHOL [Concomitant]
     Route: 065
  12. LIPITOR [Concomitant]
     Route: 065
  13. ZOCOR [Concomitant]
     Route: 065
  14. LOPID [Concomitant]
     Route: 065
  15. PLAVIX [Concomitant]
     Route: 065
  16. VIOXX [Suspect]
     Indication: PAIN IN EXTREMITY
     Route: 048
     Dates: start: 19990101, end: 20021001
  17. VIOXX [Suspect]
     Route: 048
     Dates: start: 19990601, end: 20021001
  18. VIOXX [Suspect]
     Route: 048
     Dates: start: 19990101, end: 20021001
  19. VIOXX [Suspect]
     Indication: OSTEOARTHRITIS
     Route: 048
     Dates: start: 19990601, end: 20021001
  20. VIOXX [Suspect]
     Route: 048
     Dates: start: 19990101, end: 20021001
  21. GLUCOPHAGE [Concomitant]
     Route: 065
  22. ELAVIL [Concomitant]
     Route: 065
  23. ROCEPHIN [Concomitant]
     Route: 065
  24. HUMULIN [Concomitant]
     Route: 065
  25. HYZAAR [Concomitant]
     Route: 065
  26. TRENTAL [Concomitant]
     Route: 065

REACTIONS (15)
  - CORONARY ARTERY DISEASE [None]
  - COUGH [None]
  - DEATH [None]
  - DIABETES MELLITUS [None]
  - HYPERCHOLESTEROLAEMIA [None]
  - HYPERTENSION [None]
  - INFECTION [None]
  - MYOCARDIAL INFARCTION [None]
  - NAUSEA [None]
  - OVERDOSE [None]
  - PRURITUS [None]
  - RASH [None]
  - RENAL FAILURE [None]
  - ULCER [None]
  - URINARY TRACT INFECTION [None]
